FAERS Safety Report 8016026-5 (Version None)
Quarter: 2011Q4

REPORT INFORMATION
  Report Type: 
  Country: None (occurrence: None)
  Receive Date: 20111230
  Receipt Date: 20111219
  Transmission Date: 20120403
  Serious: Yes (Hospitalization)
  Sender: FDA-Public Use
  Company Number: US-JNJFOC-20111208642

PATIENT
  Sex: Female
  Weight: 54.43 kg

DRUGS (2)
  1. REMICADE [Suspect]
     Indication: RHEUMATOID ARTHRITIS
     Dosage: 8 TO 9 YEARS
     Route: 042
  2. METHOTREXATE [Concomitant]
     Indication: RHEUMATOID ARTHRITIS
     Dates: start: 20010101

REACTIONS (12)
  - SCIATIC NERVE INJURY [None]
  - LOWER LIMB FRACTURE [None]
  - PNEUMONIA [None]
  - FALL [None]
  - HIP FRACTURE [None]
  - ROAD TRAFFIC ACCIDENT [None]
  - BONE DISORDER [None]
  - RESPIRATORY TRACT CONGESTION [None]
  - BONE DENSITY DECREASED [None]
  - LUNG DISORDER [None]
  - WEIGHT DECREASED [None]
  - BRONCHOPNEUMONIA [None]
